FAERS Safety Report 9591144 (Version 1)
Quarter: 2013Q4

REPORT INFORMATION
  Report Type: Spontaneous
  Country: US (occurrence: US)
  Receive Date: 20131003
  Receipt Date: 20131003
  Transmission Date: 20140711
  Serious: No
  Sender: FDA-Public Use
  Company Number: US-AMGEN-USASP2012075832

PATIENT
  Age: 52 Year
  Sex: Female
  Weight: 72.56 kg

DRUGS (16)
  1. ENBREL [Suspect]
     Indication: RHEUMATOID ARTHRITIS
     Dosage: 50 MG, QWK
     Route: 058
  2. JANUMET [Concomitant]
     Dosage: 50-500 MG
  3. FLEXERIL                           /00428402/ [Concomitant]
     Dosage: 10 MG, UNK
  4. PLAQUENIL                          /00072602/ [Concomitant]
     Dosage: 200 MG, UNK
  5. PREDNISONE [Concomitant]
     Dosage: 10 MG, UNK
  6. LISINOPRIL HYDROCHLORTHIAZID [Concomitant]
     Dosage: 20-12.5
  7. TIZANIDINE [Concomitant]
     Dosage: 2 MG, UNK
  8. MAGNESIUM [Concomitant]
     Dosage: 250 MG, UNK
  9. VITAMIN D                          /00107901/ [Concomitant]
     Dosage: 1000 UNIT, UNK
  10. CALCIUM [Concomitant]
     Dosage: 500 UNK, UNK
  11. PRED FORTE [Concomitant]
     Dosage: SUSPENSION 1% OP, UNK
  12. VISIONFORCE [Concomitant]
  13. ASPIRIN LOW [Concomitant]
     Dosage: 81 MG, UNK
  14. MULTIVITAMIN                       /00097801/ [Concomitant]
     Dosage: UNK
  15. HYDROCODONE [Concomitant]
  16. HOMATROPIL [Concomitant]
     Dosage: UNK

REACTIONS (1)
  - Therapeutic response decreased [Unknown]
